FAERS Safety Report 9899375 (Version 1)
Quarter: 2014Q1

REPORT INFORMATION
  Report Type: Spontaneous
  Country: US (occurrence: US)
  Receive Date: 20140214
  Receipt Date: 20140214
  Transmission Date: 20141002
  Serious: No
  Sender: FDA-Public Use
  Company Number: US-PFIZER INC-2014039057

PATIENT
  Age: 68 Year
  Sex: Female
  Weight: 86.17 kg

DRUGS (4)
  1. AMLODIPINE BESILATE [Suspect]
     Indication: HYPERTENSION
     Dosage: 2.5 MG, 1X/DAY
     Route: 048
     Dates: start: 201402, end: 201402
  2. TOPROL [Concomitant]
     Indication: BLOOD PRESSURE
     Dosage: UNK
  3. ASPIRIN [Concomitant]
     Dosage: UNK
  4. TOPROL XL [Concomitant]
     Dosage: 200 MG, UNK

REACTIONS (1)
  - Abdominal pain upper [Recovered/Resolved]
